FAERS Safety Report 13895526 (Version 1)
Quarter: 2017Q3

REPORT INFORMATION
  Report Type: Spontaneous
  Country: US (occurrence: US)
  Receive Date: 20170819
  Receipt Date: 20170819
  Transmission Date: 20171127
  Serious: Yes (Disabling, Other)
  Sender: FDA-Public Use
  Company Number: None

PATIENT
  Sex: Female
  Weight: 90 kg

DRUGS (3)
  1. DAILY MULTIVITAMIN [Concomitant]
     Active Substance: VITAMINS
  2. APRACLONIDINE OPHTHALMIC [Suspect]
     Active Substance: APRACLONIDINE HYDROCHLORIDE
     Indication: HORNER^S SYNDROME
     Dosage: ?          QUANTITY:1 DROP(S);?
     Route: 047
     Dates: start: 20160831, end: 20170814
  3. STEROID EYE DROPS [Concomitant]

REACTIONS (4)
  - Ocular hyperaemia [None]
  - Conjunctival disorder [None]
  - Palpitations [None]
  - Blister [None]

NARRATIVE: CASE EVENT DATE: 20170814
